FAERS Safety Report 8073526-X (Version None)
Quarter: 2012Q1

REPORT INFORMATION
  Report Type: 
  Country: None (occurrence: None)
  Receive Date: 20120126
  Receipt Date: 20120124
  Transmission Date: 20120608
  Serious: Yes (Hospitalization, Other)
  Sender: FDA-Public Use
  Company Number: US-BAYER-2012-007562

PATIENT
  Sex: Male

DRUGS (2)
  1. METFORMIN HCL [Concomitant]
  2. ALEVE (CAPLET) [Suspect]
     Dosage: 3 DF, QD

REACTIONS (4)
  - RENAL FAILURE [None]
  - PANCREATIC DISORDER [None]
  - GOUT [None]
  - DEHYDRATION [None]
